FAERS Safety Report 15843433 (Version 1)
Quarter: 2019Q1

REPORT INFORMATION
  Report Type: Spontaneous
  Country: US (occurrence: US)
  Receive Date: 20190116
  Receipt Date: 20190116
  Transmission Date: 20190417
  Serious: Yes (Life-Threatening, Hospitalization, Disabling, Other)
  Sender: FDA-Public Use
  Company Number: None

PATIENT
  Age: 51 Year
  Sex: Female
  Weight: 67.5 kg

DRUGS (8)
  1. SUPPLEMENTS [Concomitant]
     Active Substance: UNSPECIFIED INGREDIENT
  2. NARCOTICS [Concomitant]
     Active Substance: UNSPECIFIED INGREDIENT
  3. ADDERALL [Concomitant]
     Active Substance: AMPHETAMINE ASPARTATE\AMPHETAMINE SULFATE\DEXTROAMPHETAMINE SACCHARATE\DEXTROAMPHETAMINE SULFATE
  4. METHYLPREDNISOLONE. [Suspect]
     Active Substance: METHYLPREDNISOLONE
     Indication: BACK PAIN
     Dosage: ?          QUANTITY:1 INJECTION;OTHER ROUTE:INJECTION IN LOWER BACK?
     Dates: start: 20120816
  5. VITAMINS [Concomitant]
     Active Substance: VITAMINS
  6. LASIX [Concomitant]
     Active Substance: FUROSEMIDE
  7. VALIUM [Concomitant]
     Active Substance: DIAZEPAM
  8. WELLBURNIN [Concomitant]

REACTIONS (12)
  - Meningitis fungal [None]
  - Job dissatisfaction [None]
  - Basedow^s disease [None]
  - Heart rate decreased [None]
  - Back pain [None]
  - Hyperthyroidism [None]
  - Lyme disease [None]
  - Poor quality product administered [None]
  - Sepsis [None]
  - Subarachnoid haemorrhage [None]
  - Inadequate analgesia [None]
  - Staphylococcal infection [None]

NARRATIVE: CASE EVENT DATE: 20121004
